FAERS Safety Report 7742985 (Version 6)
Quarter: 2013Q4

REPORT INFORMATION
  Report Type: Spontaneous
  Country: US (occurrence: US)
  Receive Date: 20101229
  Receipt Date: 20131031
  Transmission Date: 20140711
  Serious: Yes (Hospitalization)
  Sender: FDA-Public Use
  Company Number: US-B.I. PHARMACEUTICALS,INC./RIDGEFIELD-2010-BP-14995BP

PATIENT
  Age: 41 Year
  Sex: Female
  Weight: 93.89 kg

DRUGS (17)
  1. PRADAXA [Suspect]
     Indication: ATRIAL FIBRILLATION
     Dosage: 300 MG
     Route: 048
     Dates: start: 20101209, end: 20101212
  2. PRADAXA [Suspect]
     Indication: THROMBOSIS PROPHYLAXIS
  3. LOPRESSOR [Concomitant]
     Indication: ATRIAL FIBRILLATION
     Dosage: 150 MG
  4. LISINOPRIL [Concomitant]
     Indication: HYPERTENSION
     Dosage: 10 MG
  5. CYCLOSPORIN [Concomitant]
     Indication: RENAL TRANSPLANT
  6. CELLCEPT [Concomitant]
     Indication: RENAL TRANSPLANT
     Dosage: 1000 MG
  7. PREDNISONE [Concomitant]
     Indication: RENAL TRANSPLANT
     Dosage: 5 MG
  8. LOSARTIN [Concomitant]
     Indication: HYPERTENSION
     Dosage: 50 MG
  9. NEXIUM [Concomitant]
     Indication: GASTROOESOPHAGEAL REFLUX DISEASE
     Dosage: 40 MG
  10. INSULIN PUMP [Concomitant]
     Indication: DIABETES MELLITUS
  11. LIPITOR [Concomitant]
     Indication: PROPHYLAXIS
     Dosage: 10 MG
  12. CLONIDINE [Concomitant]
     Indication: HYPERTENSION
     Dosage: 0.2 MG
  13. NORVASC [Concomitant]
     Indication: HYPERTENSION
     Dosage: 5 MG
  14. NEORAL [Concomitant]
     Dosage: 200 MG
  15. SMZ-TMP [Concomitant]
  16. CEPHALOSPORIN [Concomitant]
     Dosage: 200 MG
  17. VITAMIN D [Concomitant]

REACTIONS (7)
  - Mouth haemorrhage [Recovered/Resolved]
  - Haemoglobin decreased [Recovered/Resolved]
  - Gingival bleeding [Recovered/Resolved]
  - Anaemia [Unknown]
  - Haematocrit decreased [Recovered/Resolved]
  - Coagulopathy [Unknown]
  - Tooth abscess [Unknown]
